FAERS Safety Report 15488133 (Version 1)
Quarter: 2018Q4

REPORT INFORMATION
  Report Type: Spontaneous
  Country: US (occurrence: US)
  Receive Date: 20181011
  Receipt Date: 20181011
  Transmission Date: 20190205
  Serious: No
  Sender: FDA-Public Use
  Company Number: US-009507513-1809USA012102

PATIENT
  Age: 65 Year
  Sex: Female

DRUGS (1)
  1. NOXAFIL [Suspect]
     Active Substance: POSACONAZOLE
     Indication: ENDOPHTHALMITIS
     Dosage: 400 MG, BID

REACTIONS (1)
  - Product use in unapproved indication [Unknown]
